FAERS Safety Report 9263396 (Version 1)
Quarter: 2013Q2

REPORT INFORMATION
  Report Type: Spontaneous
  Country: US (occurrence: US)
  Receive Date: 20130430
  Receipt Date: 20130430
  Transmission Date: 20140414
  Serious: No
  Sender: FDA-Public Use
  Company Number: US-ABBOTT-13P-163-1078739-00

PATIENT
  Age: 70 Year
  Sex: Female
  Weight: 50.85 kg

DRUGS (5)
  1. CREON [Suspect]
     Indication: PRODUCT USED FOR UNKNOWN INDICATION
     Dosage: CREON 6, WITH MEALS
     Dates: start: 20120801
  2. CREON [Suspect]
     Dosage: CREON 12, WITH MEALS
     Dates: start: 20120801
  3. ADVAIR [Concomitant]
     Indication: BRONCHIAL HYPERREACTIVITY
     Route: 055
  4. FLONASE [Concomitant]
     Indication: BRONCHIAL HYPERREACTIVITY
  5. SINGULAIR [Concomitant]
     Indication: PRODUCT USED FOR UNKNOWN INDICATION

REACTIONS (5)
  - Sinusitis [Not Recovered/Not Resolved]
  - Headache [Not Recovered/Not Resolved]
  - Sinus congestion [Not Recovered/Not Resolved]
  - Blood thyroid stimulating hormone increased [Not Recovered/Not Resolved]
  - Bowel movement irregularity [Recovered/Resolved]
